FAERS Safety Report 6717277-X (Version None)
Quarter: 2010Q2

REPORT INFORMATION
  Report Type: 
  Country: None (occurrence: None)
  Receive Date: 20100510
  Receipt Date: 20100504
  Transmission Date: 20101027
  Serious: Yes (Death, Hospitalization)
  Sender: FDA-Public Use
  Company Number: IL-MPIJNJ-2010-02188

PATIENT

DRUGS (1)
  1. VELCADE [Suspect]
     Indication: AMYLOIDOSIS
     Route: 042

REACTIONS (3)
  - CARDIOMYOPATHY [None]
  - NEUROPATHY PERIPHERAL [None]
  - QUADRIPLEGIA [None]
